FAERS Safety Report 4482341-5 (Version None)
Quarter: 2004Q4

REPORT INFORMATION
  Report Type: 
  Country: None (occurrence: None)
  Receive Date: 20041022
  Receipt Date: 20040913
  Transmission Date: 20050328
  Serious: Yes (Death)
  Sender: FDA-Public Use
  Company Number: FR-ROCHE-380356

PATIENT
  Age: 60 Year
  Sex: Male
  Weight: 76 kg

DRUGS (19)
  1. ROVALCYTE [Suspect]
     Route: 048
     Dates: start: 20040710, end: 20040815
  2. CELLCEPT [Suspect]
     Route: 048
     Dates: start: 20040628, end: 20040810
  3. BACTRIM [Suspect]
     Indication: DRUG USE FOR UNKNOWN INDICATION
     Route: 048
     Dates: start: 20040711
  4. CALCIDOSE [Concomitant]
     Dates: end: 20040826
  5. NEORAL [Concomitant]
     Dates: end: 20040826
  6. SOLUPRED [Concomitant]
     Dates: end: 20040826
  7. MOPRAL [Concomitant]
  8. ELISOR [Concomitant]
  9. GAVISCON [Concomitant]
  10. DUPHALAC [Concomitant]
  11. DEDROGYL [Concomitant]
  12. XANAX [Concomitant]
  13. NOCTRAN [Concomitant]
  14. COLCHICINE [Concomitant]
  15. LASILIX [Concomitant]
     Indication: FLUID RETENTION
  16. KARDEGIC [Concomitant]
  17. NEXIUM [Concomitant]
  18. RIFAMICINA [Concomitant]
  19. PRIMPERAN INJ [Concomitant]

REACTIONS (5)
  - LEUKOPENIA [None]
  - MYOCARDITIS SEPTIC [None]
  - NEUTROPENIA [None]
  - OEDEMA [None]
  - SEPTIC SHOCK [None]
